FAERS Safety Report 8248612-1 (Version None)
Quarter: 2012Q1

REPORT INFORMATION
  Report Type: 
  Country: None (occurrence: None)
  Receive Date: 20120330
  Receipt Date: 20120321
  Transmission Date: 20120608
  Serious: Yes (Hospitalization)
  Sender: FDA-Public Use
  Company Number: US-ASTRAZENECA-2010SE50026

PATIENT
  Age: 905 Month
  Sex: Male

DRUGS (14)
  1. SYMBICORT [Suspect]
     Dosage: 160/4.5 MCG , INHALE TWO PUFFS TWO TIMES DAILY
     Route: 055
  2. DUONEB [Concomitant]
     Indication: CHRONIC OBSTRUCTIVE PULMONARY DISEASE
     Dosage: 0.5 MG-3 MG, 3 ML BY NEBULAZATION FOUR TIMES DAILY AS NEEDED
  3. ASPIRIN [Concomitant]
     Indication: CARDIAC DISORDER
     Route: 048
     Dates: start: 20101103
  4. AFRIN [Concomitant]
     Indication: NASAL CONGESTION
     Dosage: TWO SPRAYS BY NASAL ROUTE TWO TIMES DAILY
     Route: 045
  5. SYMBICORT [Suspect]
     Indication: CHRONIC OBSTRUCTIVE PULMONARY DISEASE
     Dosage: 160/4.5 MCG , UNKNOWN
     Route: 055
  6. PROAIR HFA INHL [Concomitant]
     Indication: CHRONIC OBSTRUCTIVE PULMONARY DISEASE
     Dosage: TWO PUFFS , FOUR TIMES DAILY
     Route: 055
  7. PREDNISONE TAB [Concomitant]
     Indication: STEROID THERAPY
     Route: 048
  8. TYLENOL [Concomitant]
     Indication: PAIN
     Route: 048
  9. PROCARDIA XL [Concomitant]
  10. CARTIA XT [Concomitant]
     Indication: CARDIAC DISORDER
     Route: 048
  11. DELTASONE [Concomitant]
     Indication: STEROID THERAPY
  12. OXYGEN [Concomitant]
     Indication: OXYGEN SUPPLEMENTATION
     Dosage: 5 LITRES/MIN , 24 HOURS/DAY
  13. CARDIZEM [Concomitant]
  14. PREDNISONE TAB [Concomitant]
     Route: 048

REACTIONS (10)
  - POST POLIO SYNDROME [None]
  - CHRONIC OBSTRUCTIVE PULMONARY DISEASE [None]
  - CHEST PAIN [None]
  - DEHYDRATION [None]
  - INTENTIONAL DRUG MISUSE [None]
  - DYSPNOEA [None]
  - HYPOPHAGIA [None]
  - DIZZINESS [None]
  - ASTHENIA [None]
  - FALL [None]
